FAERS Safety Report 16142600 (Version 1)
Quarter: 2019Q2

REPORT INFORMATION
  Report Type: Spontaneous
  Country: IT (occurrence: IT)
  Receive Date: 20190401
  Receipt Date: 20190401
  Transmission Date: 20190711
  Serious: Yes (Hospitalization, Other)
  Sender: FDA-Public Use
  Company Number: IT-BRISTOL-MYERS SQUIBB COMPANY-BMS-2019-016270

PATIENT
  Age: 81 Year
  Sex: Male

DRUGS (1)
  1. COUMADIN [Suspect]
     Active Substance: WARFARIN SODIUM
     Indication: AORTIC ANEURYSM
     Dosage: 5 MG, 1 DAY (FREQUENCY UNKNOWN)
     Route: 048
     Dates: start: 20140101, end: 20190209

REACTIONS (4)
  - Melaena [Unknown]
  - Tooth socket haemorrhage [Unknown]
  - Medication error [Unknown]
  - Haemoptysis [Unknown]

NARRATIVE: CASE EVENT DATE: 20190209
